FAERS Safety Report 11031853 (Version 3)
Quarter: 2016Q3

REPORT INFORMATION
  Report Type: Spontaneous
  Country: US (occurrence: US)
  Receive Date: 20150415
  Receipt Date: 20160823
  Transmission Date: 20161109
  Serious: Yes (Other)
  Sender: FDA-Public Use
  Company Number: US-BAYER-2015-103804

PATIENT
  Age: 56 Year
  Sex: Female
  Weight: 101.59 kg

DRUGS (8)
  1. BUPRENORPHINE. [Concomitant]
     Active Substance: BUPRENORPHINE
  2. GABAPENTIN. [Concomitant]
     Active Substance: GABAPENTIN
  3. TIZANIDINE. [Concomitant]
     Active Substance: TIZANIDINE
  4. DULOXETINE. [Concomitant]
     Active Substance: DULOXETINE
  5. CIPROFLOXACIN. [Suspect]
     Active Substance: CIPROFLOXACIN
     Dosage: 500 MG, UNK
     Route: 048
     Dates: start: 20140126, end: 20150105
  6. SYMBICORT [Concomitant]
     Active Substance: BUDESONIDE\FORMOTEROL FUMARATE DIHYDRATE
  7. AVELOX [Suspect]
     Active Substance: MOXIFLOXACIN HYDROCHLORIDE
     Dosage: UNK
     Dates: start: 201308
  8. LEVOTHYROXINE. [Concomitant]
     Active Substance: LEVOTHYROXINE

REACTIONS (12)
  - Injury [None]
  - Burning sensation [None]
  - Neuropathy peripheral [None]
  - Quality of life decreased [None]
  - Anxiety [None]
  - Emotional distress [None]
  - Muscle twitching [None]
  - Bone pain [None]
  - Hypoaesthesia [None]
  - Pain [None]
  - Fear [None]
  - Muscle spasms [None]
